FAERS Safety Report 18466738 (Version 1)
Quarter: 2020Q4

REPORT INFORMATION
  Report Type: Spontaneous
  Country: SK (occurrence: SK)
  Receive Date: 20201105
  Receipt Date: 20201105
  Transmission Date: 20210114
  Serious: Yes (Death, Life-Threatening, Hospitalization, Other)
  Sender: FDA-Public Use
  Company Number: SK-ROCHE-2708378

PATIENT
  Age: 70 Year
  Sex: Female
  Weight: 105 kg

DRUGS (7)
  1. EBRANTIL [Concomitant]
     Active Substance: URAPIDIL
     Indication: PRODUCT USED FOR UNKNOWN INDICATION
  2. EBRANTIL [Concomitant]
     Active Substance: URAPIDIL
  3. EBRANTIL [Concomitant]
     Active Substance: URAPIDIL
     Dosage: 60 MG 1-1/2-1
  4. ATORIS [Concomitant]
     Active Substance: ATORVASTATIN CALCIUM
     Indication: PRODUCT USED FOR UNKNOWN INDICATION
     Dosage: ATORIS 30 0-0-1
  5. PRENESSA [Concomitant]
     Active Substance: PERINDOPRIL
     Indication: PRODUCT USED FOR UNKNOWN INDICATION
     Dosage: PRENESSA 8 MG 1-0-0,
  6. ACTILYSE [Suspect]
     Active Substance: ALTEPLASE
     Indication: CEREBROVASCULAR ACCIDENT
     Dosage: ACTILYSE 50 MG ONE, ACTILYSE 20 MG TWO, FREQUENCY: 1
     Route: 042
     Dates: start: 20201005, end: 20201005
  7. ISOPTIN [Concomitant]
     Active Substance: VERAPAMIL HYDROCHLORIDE
     Indication: PRODUCT USED FOR UNKNOWN INDICATION
     Dosage: ISOPTIN SR 240 MG 1-0-0,

REACTIONS (6)
  - Cardiac arrest [Recovered/Resolved]
  - Pneumonia bacterial [Fatal]
  - Coma [Fatal]
  - Swollen tongue [Recovered/Resolved]
  - Pyrexia [Unknown]
  - Cough [Unknown]

NARRATIVE: CASE EVENT DATE: 20201005
